FAERS Safety Report 4330381-9 (Version None)
Quarter: 2004Q1

REPORT INFORMATION
  Report Type: 
  Country: None (occurrence: None)
  Receive Date: 20040329
  Receipt Date: 20040315
  Transmission Date: 20041129
  Serious: Yes (Hospitalization)
  Sender: FDA-Public Use
  Company Number: 04P-056-0252423-00

PATIENT
  Age: 75 Year
  Sex: Female

DRUGS (3)
  1. MERIDIA [Suspect]
     Indication: WEIGHT CONTROL
     Dosage: PER ORAL
     Route: 048
     Dates: start: 20011010, end: 20011103
  2. FLECAINIDE ACETATE [Suspect]
     Indication: ATRIAL FIBRILLATION
     Dosage: 1 IN 1 D, PER ORAL
     Route: 048
     Dates: start: 19980630, end: 20011104
  3. AMIADARONE [Concomitant]

REACTIONS (4)
  - ATRIAL FIBRILLATION [None]
  - CHEST PAIN [None]
  - HEART RATE INCREASED [None]
  - PALPITATIONS [None]
